FAERS Safety Report 6537267-X (Version None)
Quarter: 2010Q1

REPORT INFORMATION
  Report Type: 
  Country: None (occurrence: None)
  Receive Date: 20100114
  Receipt Date: 20100107
  Transmission Date: 20100710
  Serious: Yes (Hospitalization, Other)
  Sender: FDA-Public Use
  Company Number: US-BAYER-200942688NA

PATIENT
  Age: 71 Year
  Sex: Female
  Weight: 72 kg

DRUGS (4)
  1. CIPRO [Suspect]
     Indication: CYSTITIS
     Dosage: TOTAL DAILY DOSE: 1000 MG  UNIT DOSE: 500 MG
     Dates: start: 20091012
  2. SIMVASTATIN [Concomitant]
  3. NADOLOL [Concomitant]
  4. PREMARIN [Concomitant]

REACTIONS (7)
  - ASTHENIA [None]
  - BLOOD PRESSURE INCREASED [None]
  - DEHYDRATION [None]
  - DIARRHOEA [None]
  - DIZZINESS [None]
  - DRUG HYPERSENSITIVITY [None]
  - DYSPNOEA [None]
